FAERS Safety Report 13782824 (Version 3)
Quarter: 2017Q3

REPORT INFORMATION
  Report Type: Spontaneous
  Country: JP (occurrence: JP)
  Receive Date: 20170724
  Receipt Date: 20170809
  Transmission Date: 20171127
  Serious: Yes (Death, Other)
  Sender: FDA-Public Use
  Company Number: PHJP2017JP023461

PATIENT
  Age: 13 Year
  Sex: Male
  Weight: 25 kg

DRUGS (71)
  1. CYCLOPHOSPHAMIDE. [Concomitant]
     Active Substance: CYCLOPHOSPHAMIDE
     Dosage: 200 MG/M2, BID, DAY 2-4, 5 TIMES (HR1)
     Route: 042
  2. 6-MERCAPTOPURINE MONOHYDRATE [Concomitant]
     Active Substance: MERCAPTOPURINE
     Indication: PRODUCT USED FOR UNKNOWN INDICATION
     Dosage: 60 MG/M2, DAY 36-63
     Route: 048
  3. DEXAMETHASONE SODIUM PHOSPHATE. [Concomitant]
     Active Substance: DEXAMETHASONE SODIUM PHOSPHATE
     Indication: PRODUCT USED FOR UNKNOWN INDICATION
     Dosage: 20 MG/M2, PO OR IV, DAY1-5 (HR3)
     Route: 065
  4. DEXAMETHASONE SODIUM PHOSPHATE. [Concomitant]
     Active Substance: DEXAMETHASONE SODIUM PHOSPHATE
     Dosage: 20 MG/M2, PO OR IV, DAY1-5 (HR1)
     Route: 065
  5. DEXAMETHASONE SODIUM PHOSPHATE. [Concomitant]
     Active Substance: DEXAMETHASONE SODIUM PHOSPHATE
     Dosage: 10 MG/M2, PO OR IV, DAY 1-14
     Route: 065
  6. DEXAMETHASONE SODIUM PHOSPHATE. [Concomitant]
     Active Substance: DEXAMETHASONE SODIUM PHOSPHATE
     Dosage: 5-2.5-1.25 MG/M2, DAY 15-23
     Route: 065
  7. AMPHOTERICIN [Concomitant]
     Active Substance: AMPHOTERICIN B
     Indication: PRODUCT USED FOR UNKNOWN INDICATION
     Dosage: UNK
     Route: 065
  8. VINCRISTINE [Concomitant]
     Active Substance: VINCRISTINE
     Dosage: 1.5 MG/M2, DAY1, 8
     Route: 042
  9. PREDNISOLONE ACETATE. [Concomitant]
     Active Substance: PREDNISOLONE ACETATE
     Dosage: 60 MG/M2, UNK
     Route: 065
  10. VINDESINE [Concomitant]
     Active Substance: VINDESINE
     Indication: PRODUCT USED FOR UNKNOWN INDICATION
     Dosage: 3 MG/M2, DAY 1, 6
     Route: 042
  11. VANCOMYCIN [Concomitant]
     Active Substance: VANCOMYCIN
     Indication: PRODUCT USED FOR UNKNOWN INDICATION
     Dosage: 10 MG/KG/DOSE (0.3G), UNK
     Route: 065
  12. LEUCOVORIN. [Concomitant]
     Active Substance: LEUCOVORIN
     Dosage: 15 MG/M2, AT 42, 48 AND 54H
     Route: 042
  13. DOXORUBICIN [Concomitant]
     Active Substance: DOXORUBICIN
     Indication: PRODUCT USED FOR UNKNOWN INDICATION
     Dosage: 30 MG/M2, DAY 1, 8
     Route: 042
  14. GRANULOCYTE COLONY STIMULATING FACTOR [Concomitant]
     Active Substance: GRANULOCYTE COLONY-STIMULATING FACTOR NOS
     Indication: PRODUCT USED FOR UNKNOWN INDICATION
     Dosage: UNK
     Route: 065
  15. PREDNISOLONE ACETATE. [Concomitant]
     Active Substance: PREDNISOLONE ACETATE
     Dosage: 10 MG, DAY 5 (HR3)
     Route: 065
  16. DAUNORUBICIN [Concomitant]
     Active Substance: DAUNORUBICIN
     Indication: PRODUCT USED FOR UNKNOWN INDICATION
     Dosage: 30 MG/M2, DAY 8, 15, 22, 29 (IA)
     Route: 042
  17. METHOTREXATE. [Concomitant]
     Active Substance: METHOTREXATE
     Dosage: HD,5 G/M2, DAY1 (HR2)
     Route: 042
  18. CYTARABINE. [Concomitant]
     Active Substance: CYTARABINE
     Dosage: 5 MG/M2, DAY38-41, 45-48, 52-55, 59-62 (IB)
     Route: 042
  19. CYTARABINE. [Concomitant]
     Active Substance: CYTARABINE
     Dosage: 75 MG/M2, DAY 17-20, 24-27 (HR1)
     Route: 042
  20. CYCLOPHOSPHAMIDE. [Concomitant]
     Active Substance: CYCLOPHOSPHAMIDE
     Indication: PRODUCT USED FOR UNKNOWN INDICATION
     Dosage: 1000 MG/M2, DAY 36-64 (IB)
     Route: 042
  21. METHYLPREDNISOLONE. [Concomitant]
     Active Substance: METHYLPREDNISOLONE
     Dosage: UNK
     Route: 065
  22. MEROPENEM. [Concomitant]
     Active Substance: MEROPENEM
     Indication: PRODUCT USED FOR UNKNOWN INDICATION
     Dosage: 33 MG/KG/DOSE (1G), UNK
     Route: 065
  23. MEROPENEM. [Concomitant]
     Active Substance: MEROPENEM
     Dosage: 60 MG/KG, QD
     Route: 065
  24. VINCRISTINE [Concomitant]
     Active Substance: VINCRISTINE
     Indication: PRODUCT USED FOR UNKNOWN INDICATION
     Dosage: 5 MG/M2, DAY 8, 15, 22, 29 (IA)
     Route: 042
  25. PREDNISOLONE ACETATE. [Concomitant]
     Active Substance: PREDNISOLONE ACETATE
     Indication: PRODUCT USED FOR UNKNOWN INDICATION
     Dosage: 15-60MG/M2,DAY1-7 (IA)
     Route: 065
  26. PREDNISOLONE ACETATE. [Concomitant]
     Active Substance: PREDNISOLONE ACETATE
     Dosage: 30-15-7.5MG/M2,DAY 29-37 (IA)
     Route: 065
  27. DAUNORUBICIN [Concomitant]
     Active Substance: DAUNORUBICIN
     Dosage: 30 MG/M2, DAY 5
     Route: 042
  28. L-ASPARAGINASE [Concomitant]
     Active Substance: ASPARAGINASE
     Dosage: 25000U/M2, DAY 6, 11 (HR1)
     Route: 030
  29. METHOTREXATE. [Concomitant]
     Active Substance: METHOTREXATE
     Dosage: 12 MG, (IA, TIT)
     Route: 029
  30. METHOTREXATE. [Concomitant]
     Active Substance: METHOTREXATE
     Dosage: 12 MG, (HR2, TIT)
     Route: 029
  31. CYTARABINE. [Concomitant]
     Active Substance: CYTARABINE
     Dosage: HD2000 MG/M2, DAY 1-2, 4 TIMES (HR3)
     Route: 042
  32. CYTARABINE. [Concomitant]
     Active Substance: CYTARABINE
     Dosage: 30 MG, UNK30 MG, (HR2)
     Route: 065
  33. CYTARABINE. [Concomitant]
     Active Substance: CYTARABINE
     Dosage: 30 MG, (HR1)
     Route: 065
  34. CYCLOPHOSPHAMIDE. [Concomitant]
     Active Substance: CYCLOPHOSPHAMIDE
     Dosage: 500 MG/M2, DAY 15
     Route: 042
  35. DEXAMETHASONE SODIUM PHOSPHATE. [Concomitant]
     Active Substance: DEXAMETHASONE SODIUM PHOSPHATE
     Dosage: 20 MG/M2, PO OR IV, DAY 1-5 (HR2)
     Route: 065
  36. GLIVEC [Suspect]
     Active Substance: IMATINIB MESYLATE
     Dosage: 340 MG/M2, UNK
     Route: 048
  37. GLIVEC [Suspect]
     Active Substance: IMATINIB MESYLATE
     Dosage: 340 MG/M2, CONTINUOUS (HR2)
     Route: 048
  38. L-ASPARAGINASE [Concomitant]
     Active Substance: ASPARAGINASE
     Indication: PRODUCT USED FOR UNKNOWN INDICATION
     Dosage: 5000U/M2, DAY12, 15, 18, 21, 24, 27, 30, 33 (IA)
     Route: 030
  39. METHOTREXATE. [Concomitant]
     Active Substance: METHOTREXATE
     Indication: PRODUCT USED FOR UNKNOWN INDICATION
     Dosage: 12 MG, DAY 1 (IA, IT)
     Route: 029
  40. ETOPOSIDE. [Concomitant]
     Active Substance: ETOPOSIDE
     Indication: PRODUCT USED FOR UNKNOWN INDICATION
     Dosage: 100 MG/M2, BID, DAY 3-5, 5 TIMES
     Route: 065
  41. LINEZOLID. [Concomitant]
     Active Substance: LINEZOLID
     Indication: PRODUCT USED FOR UNKNOWN INDICATION
     Dosage: UNK
     Route: 065
  42. GLIVEC [Suspect]
     Active Substance: IMATINIB MESYLATE
     Dosage: 340 MG/M2, CONTINUOUS (HR1)
     Route: 048
  43. PREDNISOLONE ACETATE. [Concomitant]
     Active Substance: PREDNISOLONE ACETATE
     Dosage: 10 MG, UNK
     Route: 065
  44. PREDNISOLONE ACETATE. [Concomitant]
     Active Substance: PREDNISOLONE ACETATE
     Dosage: 10 MG, UNK
     Route: 065
  45. L-ASPARAGINASE [Concomitant]
     Active Substance: ASPARAGINASE
     Dosage: 25000U/M2,DAY 6, 11 (HR2)
     Route: 030
  46. L-ASPARAGINASE [Concomitant]
     Active Substance: ASPARAGINASE
     Dosage: 10000U/M2,DAY 1, 4, 8, 11
     Route: 030
  47. METHOTREXATE. [Concomitant]
     Active Substance: METHOTREXATE
     Dosage: 12 MG, (IB)
     Route: 029
  48. METHOTREXATE. [Concomitant]
     Active Substance: METHOTREXATE
     Dosage: 12 MG, (HR1, TIT)
     Route: 029
  49. METHOTREXATE. [Concomitant]
     Active Substance: METHOTREXATE
     Dosage: 12 MG, (TIT)
     Route: 029
  50. CYTARABINE. [Concomitant]
     Active Substance: CYTARABINE
     Indication: PRODUCT USED FOR UNKNOWN INDICATION
     Dosage: 30 MG (IA)
     Route: 065
  51. CYTARABINE. [Concomitant]
     Active Substance: CYTARABINE
     Dosage: 30 MG, (IB)
     Route: 065
  52. CYTARABINE. [Concomitant]
     Active Substance: CYTARABINE
     Dosage: 30 MG, UNK
     Route: 065
  53. LEUCOVORIN. [Concomitant]
     Active Substance: LEUCOVORIN
     Indication: PRODUCT USED FOR UNKNOWN INDICATION
     Dosage: 15 MG/M2, AT 42, 48 AND 54H
     Route: 042
  54. METHYLPREDNISOLONE. [Concomitant]
     Active Substance: METHYLPREDNISOLONE
     Indication: PRODUCT USED FOR UNKNOWN INDICATION
     Dosage: 2 MG/KG, UNK
     Route: 065
  55. VANCOMYCIN [Concomitant]
     Active Substance: VANCOMYCIN
     Dosage: 20 MG/KG, QD
     Route: 065
  56. MICAFUNGIN [Concomitant]
     Active Substance: MICAFUNGIN
     Indication: PRODUCT USED FOR UNKNOWN INDICATION
     Dosage: 150 MG, UNK
     Route: 065
  57. FLUCONAZOLE. [Concomitant]
     Active Substance: FLUCONAZOLE
     Indication: PRODUCT USED FOR UNKNOWN INDICATION
     Dosage: UNK
     Route: 065
  58. VINCRISTINE [Concomitant]
     Active Substance: VINCRISTINE
     Dosage: 1.5 MG/M2, DAY1, 6 (HR1)
     Route: 042
  59. PREDNISOLONE ACETATE. [Concomitant]
     Active Substance: PREDNISOLONE ACETATE
     Dosage: 10 MG, DAY1 (HR2)
     Route: 065
  60. PREDNISOLONE ACETATE. [Concomitant]
     Active Substance: PREDNISOLONE ACETATE
     Dosage: 10 MG, DAY1 (HR1)
     Route: 065
  61. PREDNISOLONE ACETATE. [Concomitant]
     Active Substance: PREDNISOLONE ACETATE
     Dosage: 10 MG, NTRASPINAL INJECTION, DAY 17, 24
     Route: 029
  62. L-ASPARAGINASE [Concomitant]
     Active Substance: ASPARAGINASE
     Dosage: 25000U/M2, DAY 6, 11 (HR3)
     Route: 030
  63. CYTARABINE. [Concomitant]
     Active Substance: CYTARABINE
     Dosage: 30 MG, (HR3)
     Route: 065
  64. CYTARABINE. [Concomitant]
     Active Substance: CYTARABINE
     Dosage: HD2000 MG/M2, DAY5, 2 TIMES (HR1)
     Route: 042
  65. 6-MERCAPTOPURINE MONOHYDRATE [Concomitant]
     Active Substance: MERCAPTOPURINE
     Dosage: 60 MG/M2, DAY 15-28
     Route: 048
  66. IFOSFAMIDE. [Concomitant]
     Active Substance: IFOSFAMIDE
     Indication: PRODUCT USED FOR UNKNOWN INDICATION
     Dosage: 800 MG/M2, BID
     Route: 042
  67. GLIVEC [Suspect]
     Active Substance: IMATINIB MESYLATE
     Indication: ACUTE LYMPHOCYTIC LEUKAEMIA
     Dosage: 340 MG/M2, DAY1 5-CONTINUOUS (IA)
     Route: 048
  68. GLIVEC [Suspect]
     Active Substance: IMATINIB MESYLATE
     Dosage: 340 MG/M2, UNK
     Route: 048
  69. GLIVEC [Suspect]
     Active Substance: IMATINIB MESYLATE
     Dosage: 340 MG/M2, CONTINUOUS
     Route: 048
  70. METHOTREXATE. [Concomitant]
     Active Substance: METHOTREXATE
     Dosage: 12 MG, (HR3, TIT)
     Route: 029
  71. METHOTREXATE. [Concomitant]
     Active Substance: METHOTREXATE
     Dosage: HD, 5 G/M2, (HR1, DAY1)
     Route: 042

REACTIONS (23)
  - Colitis ischaemic [Fatal]
  - Hypoalbuminaemia [Unknown]
  - Septic shock [Fatal]
  - Diarrhoea [Fatal]
  - Multiple organ dysfunction syndrome [Fatal]
  - Bacterial translocation [Unknown]
  - Hypophagia [Fatal]
  - Abdominal pain [Fatal]
  - Anuria [Fatal]
  - Pericarditis [Fatal]
  - Pulmonary haemorrhage [Fatal]
  - Renal tubular necrosis [Fatal]
  - Abdominal pain [Unknown]
  - Anaemia [Fatal]
  - Dyspnoea [Fatal]
  - Sepsis [Unknown]
  - Vomiting [Fatal]
  - Febrile neutropenia [Fatal]
  - Pancreatitis necrotising [Fatal]
  - Acute respiratory distress syndrome [Fatal]
  - Diffuse alveolar damage [Fatal]
  - Cytomegalovirus infection [Unknown]
  - Disseminated intravascular coagulation [Unknown]
